FAERS Safety Report 20985610 (Version 1)
Quarter: 2022Q2

REPORT INFORMATION
  Report Type: Spontaneous
  Country: DE (occurrence: None)
  Receive Date: 20220621
  Receipt Date: 20220621
  Transmission Date: 20220721
  Serious: Yes (Death, Hospitalization)
  Sender: FDA-Public Use
  Company Number: None

PATIENT
  Age: 71 Year
  Sex: Male

DRUGS (10)
  1. GANCICLOVIR [Suspect]
     Active Substance: GANCICLOVIR
     Indication: Paraneoplastic pemphigus
     Dosage: ()
     Route: 065
     Dates: start: 2021
  2. CEFTRIAXONE [Suspect]
     Active Substance: CEFTRIAXONE
     Indication: Paraneoplastic pemphigus
     Route: 065
     Dates: start: 2021
  3. MEROPENEM [Suspect]
     Active Substance: MEROPENEM
     Indication: Paraneoplastic pemphigus
     Dosage: ()
     Dates: start: 2021
  4. BENDAMUSTINE [Concomitant]
     Active Substance: BENDAMUSTINE
     Indication: Follicular lymphoma stage IV
     Dosage: ON DAY 1 AND 2
     Route: 065
     Dates: start: 202109
  5. OBINUTUZUMAB [Concomitant]
     Active Substance: OBINUTUZUMAB
     Indication: Follicular lymphoma stage IV
     Dosage: STARTING DOSE (ABSOLUTE)
     Route: 065
     Dates: start: 202109
  6. PIPERACILLIN SODIUM\TAZOBACTAM SODIUM [Suspect]
     Active Substance: PIPERACILLIN SODIUM\TAZOBACTAM SODIUM
     Indication: Paraneoplastic pemphigus
     Dosage: TIME INTERVAL: 0.25 D
     Route: 065
     Dates: start: 2021
  7. PREDNISOLONE [Concomitant]
     Active Substance: PREDNISOLONE
     Indication: Paraneoplastic pemphigus
     Dosage: HIGH DOSE
     Route: 042
     Dates: start: 2021
  8. VORICONAZOLE [Suspect]
     Active Substance: VORICONAZOLE
     Indication: Paraneoplastic pemphigus
     Dosage: ()
     Route: 065
     Dates: start: 2021
  9. OBINUTUZUMAB [Concomitant]
     Active Substance: OBINUTUZUMAB
     Indication: Follicular lymphoma stage IV
     Dosage: SECOND ADMINISTRATION
     Route: 065
  10. LINEZOLID [Suspect]
     Active Substance: LINEZOLID
     Indication: Paraneoplastic pemphigus
     Dosage: ()
     Route: 065
     Dates: start: 2021

REACTIONS (1)
  - Drug ineffective [Fatal]
